FAERS Safety Report 7795657-1 (Version None)
Quarter: 2011Q4

REPORT INFORMATION
  Report Type: 
  Country: None (occurrence: None)
  Receive Date: 20111004
  Receipt Date: 20110923
  Transmission Date: 20120403
  Serious: Yes (Hospitalization)
  Sender: FDA-Public Use
  Company Number: FR-GLAXOSMITHKLINE-B0749960A

PATIENT
  Sex: Male

DRUGS (16)
  1. AMIKACIN [Suspect]
     Indication: PRODUCT USED FOR UNKNOWN INDICATION
     Dosage: 1G PER DAY
     Route: 042
     Dates: start: 20110711, end: 20110712
  2. BACTRIM [Concomitant]
     Dosage: 2TAB SEE DOSAGE TEXT
     Route: 048
  3. ZOFRAN [Suspect]
     Indication: PRODUCT USED FOR UNKNOWN INDICATION
     Dosage: 8MG TWICE PER DAY
     Route: 048
     Dates: start: 20110708, end: 20110713
  4. TRAMADOL HCL [Suspect]
     Indication: PRODUCT USED FOR UNKNOWN INDICATION
     Route: 048
     Dates: start: 20110709, end: 20110712
  5. CIPROFLOXACIN HCL [Suspect]
     Indication: PRODUCT USED FOR UNKNOWN INDICATION
     Route: 042
     Dates: start: 20110713, end: 20110715
  6. CYTARABINE [Suspect]
     Indication: ACUTE MYELOID LEUKAEMIA
     Dosage: 1.9G PER DAY
     Route: 042
     Dates: start: 20110708, end: 20110712
  7. TIENAM [Concomitant]
     Indication: PRODUCT USED FOR UNKNOWN INDICATION
     Dosage: 1G THREE TIMES PER DAY
     Route: 042
     Dates: start: 20110717
  8. VALACYCLOVIR HYDROCHLORIDE [Suspect]
     Indication: ANTIVIRAL PROPHYLAXIS
     Dosage: 500MG TWICE PER DAY
     Route: 048
  9. PENTACARINAT [Concomitant]
     Route: 055
  10. RASBURICASE [Concomitant]
  11. PIPERACILLIN AND TAZOBACTAM [Suspect]
     Indication: PRODUCT USED FOR UNKNOWN INDICATION
     Route: 042
     Dates: start: 20110711, end: 20110712
  12. TARGOCID [Concomitant]
     Dosage: 400MG TWICE PER DAY
     Route: 042
     Dates: start: 20110713
  13. HYDREA [Concomitant]
     Dosage: 1500MG TWICE PER DAY
     Route: 048
  14. VFEND [Suspect]
     Indication: ANTIFUNGAL PROPHYLAXIS
     Dosage: 600MG PER DAY
     Route: 048
  15. CLOFARABINE [Suspect]
     Indication: PRODUCT USED FOR UNKNOWN INDICATION
     Dosage: 59MG PER DAY
     Route: 042
     Dates: start: 20110708, end: 20110712
  16. EMEND [Suspect]
     Indication: PRODUCT USED FOR UNKNOWN INDICATION
     Route: 048
     Dates: start: 20110708, end: 20110713

REACTIONS (6)
  - PAPULE [None]
  - DRY SKIN [None]
  - SKIN EXFOLIATION [None]
  - SKIN LESION [None]
  - BURNING SENSATION [None]
  - PHOTOSENSITIVITY REACTION [None]
